FAERS Safety Report 7374330-8 (Version None)
Quarter: 2011Q1

REPORT INFORMATION
  Report Type: 
  Country: None (occurrence: None)
  Receive Date: 20110315
  Receipt Date: 20110303
  Transmission Date: 20110831
  Serious: Yes (Hospitalization, Other)
  Sender: FDA-Public Use
  Company Number: DE-2011-0585

PATIENT
  Sex: Female

DRUGS (2)
  1. XELODA [Suspect]
     Indication: BREAST CANCER
     Dosage: 2000 MG QD PO
     Route: 048
     Dates: start: 20110101
  2. NAVELBINE [Suspect]
     Indication: BREAST CANCER
     Dosage: 25 MG/M2 IV
     Route: 042
     Dates: start: 20110101

REACTIONS (5)
  - WEIGHT INCREASED [None]
  - FLATULENCE [None]
  - HEPATIC STEATOSIS [None]
  - ABDOMINAL PAIN [None]
  - HAIR GROWTH ABNORMAL [None]
